FAERS Safety Report 21459807 (Version 2)
Quarter: 2022Q4

REPORT INFORMATION
  Report Type: Spontaneous
  Country: FI (occurrence: FI)
  Receive Date: 20221014
  Receipt Date: 20221201
  Transmission Date: 20230113
  Serious: Yes (Other)
  Sender: FDA-Public Use
  Company Number: FI-TEVA-2022-FI-2082417

PATIENT
  Sex: Female

DRUGS (1)
  1. OLANZAPINE [Suspect]
     Active Substance: OLANZAPINE
     Indication: Product used for unknown indication
     Route: 065
     Dates: start: 2017

REACTIONS (11)
  - Arrhythmia [Unknown]
  - Neuroleptic malignant syndrome [Unknown]
  - Weight increased [Unknown]
  - Nasal obstruction [Unknown]
  - Dyspnoea [Unknown]
  - Fatigue [Unknown]
  - Depression [Unknown]
  - Loss of libido [Unknown]
  - Nervous system disorder [Unknown]
  - Muscle twitching [Not Recovered/Not Resolved]
  - Emotional disorder [Unknown]
